FAERS Safety Report 9791344 (Version 2)
Quarter: 2014Q1

REPORT INFORMATION
  Report Type: Spontaneous
  Country: US (occurrence: US)
  Receive Date: 20140101
  Receipt Date: 20140307
  Transmission Date: 20141002
  Serious: Yes (Hospitalization, Other)
  Sender: FDA-Public Use
  Company Number: US-AMGEN-USASP2013090973

PATIENT
  Age: 41 Year
  Sex: Female
  Weight: 75 kg

DRUGS (6)
  1. EPOGEN [Suspect]
     Indication: PRODUCT USED FOR UNKNOWN INDICATION
     Dosage: 2000 UNITS, UNK
     Route: 042
     Dates: start: 20131217
  2. HECTOROL [Suspect]
     Indication: PRODUCT USED FOR UNKNOWN INDICATION
     Dosage: 2 MCG, UNK
     Route: 042
     Dates: start: 20131217
  3. VENOFER [Suspect]
     Indication: NEPHROGENIC ANAEMIA
     Dosage: 50 MG, UNK
     Route: 065
     Dates: start: 20131217
  4. VENOFER [Suspect]
     Dosage: 100 MG, UNK
     Route: 042
     Dates: end: 20131217
  5. NATURALYTE [Concomitant]
     Dosage: UNK
  6. NORMAL SALINE [Concomitant]
     Dosage: UNK

REACTIONS (9)
  - Syncope [Unknown]
  - Loss of consciousness [Recovered/Resolved]
  - Staring [Recovered/Resolved]
  - Lack of spontaneous speech [Recovered/Resolved]
  - Discomfort [Recovered/Resolved]
  - Hypotension [Recovered/Resolved]
  - Hypertension [Unknown]
  - Altered state of consciousness [Recovered/Resolved]
  - Blood glucose increased [Unknown]
